FAERS Safety Report 6708549-3 (Version None)
Quarter: 2010Q2

REPORT INFORMATION
  Report Type: 
  Country: None (occurrence: None)
  Receive Date: 20100503
  Receipt Date: 20100415
  Transmission Date: 20101027
  Serious: Yes (Hospitalization)
  Sender: FDA-Public Use
  Company Number: FR-PFIZER INC-2010046216

PATIENT
  Age: 89 Year
  Sex: Female

DRUGS (10)
  1. TAHOR [Suspect]
     Dosage: 40 MG, 1X/DAY
     Route: 048
  2. ATARAX [Suspect]
     Dosage: UNK
     Route: 048
  3. RENNIE [Suspect]
     Dosage: 1 DF, 3X/DAY
     Route: 048
     Dates: start: 20100225, end: 20100225
  4. COVERSYL [Suspect]
     Indication: HYPERTENSION
     Dosage: 4 MG, 1X/DAY
     Route: 048
     Dates: end: 20100226
  5. FLUDEX [Suspect]
     Indication: HYPERTENSION
     Dosage: 1.5 MG, 1X/DAY
     Route: 048
  6. PLAVIX [Suspect]
     Indication: ISCHAEMIC CARDIOMYOPATHY
     Dosage: 75 MG, 1X/DAY
     Route: 048
  7. ZOPICLONE [Suspect]
     Dosage: 1 DF, 1X/DAY
     Route: 048
  8. LEVOTHYROX [Suspect]
     Indication: GOITRE
     Dosage: 25 UG, 1X/DAY
     Route: 048
  9. NOVONORM [Suspect]
     Indication: TYPE 2 DIABETES MELLITUS
     Dosage: UNK MG, UNK
     Route: 048
  10. CELIPROLOL [Suspect]
     Indication: ISCHAEMIC CARDIOMYOPATHY
     Dosage: 200 MG, 1X/DAY
     Route: 048

REACTIONS (2)
  - LOCALISED OEDEMA [None]
  - TONGUE OEDEMA [None]
